FAERS Safety Report 17575980 (Version 2)
Quarter: 2023Q1

REPORT INFORMATION
  Report Type: Spontaneous
  Country: US (occurrence: US)
  Receive Date: 20200324
  Receipt Date: 20230321
  Transmission Date: 20230418
  Serious: Yes (Other)
  Sender: FDA-Public Use
  Company Number: US-GILEAD-2020-0456178

PATIENT
  Age: 61 Year
  Sex: Female
  Weight: 76.644 kg

DRUGS (32)
  1. ATRIPLA [Suspect]
     Active Substance: EFAVIRENZ\EMTRICITABINE\TENOFOVIR DISOPROXIL FUMARATE
     Indication: HIV infection
     Dosage: UNK
     Route: 048
     Dates: start: 2006, end: 201807
  2. BIKTARVY [Concomitant]
     Active Substance: BICTEGRAVIR SODIUM\EMTRICITABINE\TENOFOVIR ALAFENAMIDE FUMARATE
  3. GENVOYA [Concomitant]
     Active Substance: COBICISTAT\ELVITEGRAVIR\EMTRICITABINE\TENOFOVIR ALAFENAMIDE FUMARATE
  4. VERAPAMIL [Concomitant]
     Active Substance: VERAPAMIL HYDROCHLORIDE
  5. CELECOXIB [Concomitant]
     Active Substance: CELECOXIB
  6. COREG [Concomitant]
     Active Substance: CARVEDILOL
  7. ASPIRIN [Concomitant]
     Active Substance: ASPIRIN
  8. TERAZOSIN [Concomitant]
     Active Substance: TERAZOSIN HYDROCHLORIDE
  9. ROPINIROLE [Concomitant]
     Active Substance: ROPINIROLE
  10. FUROSEMIDE\POTASSIUM CHLORIDE [Concomitant]
     Active Substance: FUROSEMIDE\POTASSIUM CHLORIDE
  11. MYLANTA [Concomitant]
     Active Substance: ALUMINUM HYDROXIDE\DIMETHICONE\MAGNESIUM HYDROXIDE
  12. DIPHENHYDRAMINE HYDROCHLORIDE [Concomitant]
     Active Substance: DIPHENHYDRAMINE HYDROCHLORIDE
  13. MINERALS\VITAMINS [Concomitant]
     Active Substance: MINERALS\VITAMINS
  14. ZANTAC [Concomitant]
     Active Substance: RANITIDINE HYDROCHLORIDE
  15. PREVNAR 13 [Concomitant]
     Active Substance: PNEUMOCOCCAL 13-VALENT CONJUGATE VACCINE
  16. REQUIP [Concomitant]
     Active Substance: ROPINIROLE HYDROCHLORIDE
  17. TAPENTADOL [Concomitant]
     Active Substance: TAPENTADOL
  18. TRAMADOL [Concomitant]
     Active Substance: TRAMADOL
  19. ULTRAM ER [Concomitant]
     Active Substance: TRAMADOL HYDROCHLORIDE
  20. VANCOMYCIN [Concomitant]
     Active Substance: VANCOMYCIN
  21. VITAMIN D3 [Concomitant]
     Active Substance: CHOLECALCIFEROL
  22. ASPIRIN [Concomitant]
     Active Substance: ASPIRIN
  23. FUROSEMIDE [Concomitant]
     Active Substance: FUROSEMIDE
  24. HYDROCHLOROTHIAZIDE [Concomitant]
     Active Substance: HYDROCHLOROTHIAZIDE
  25. KLOR-CON [Concomitant]
     Active Substance: POTASSIUM CHLORIDE
  26. LEXAPRO [Concomitant]
     Active Substance: ESCITALOPRAM OXALATE
  27. MORPHINE [Concomitant]
     Active Substance: MORPHINE
  28. NABUMETONE [Concomitant]
     Active Substance: NABUMETONE
  29. NALOXONE [Concomitant]
     Active Substance: NALOXONE
  30. NORCO [Concomitant]
     Active Substance: ACETAMINOPHEN\HYDROCODONE BITARTRATE
  31. ONDANSETRON HCL [Concomitant]
     Active Substance: ONDANSETRON HYDROCHLORIDE
  32. PHENOLATE S [Concomitant]

REACTIONS (9)
  - Hand fracture [Unknown]
  - Osteoporosis [Unknown]
  - Bone density decreased [Unknown]
  - Pain [Not Recovered/Not Resolved]
  - Emotional distress [Not Recovered/Not Resolved]
  - Anxiety [Not Recovered/Not Resolved]
  - Anhedonia [Not Recovered/Not Resolved]
  - Economic problem [Unknown]
  - Osteopenia [Not Recovered/Not Resolved]

NARRATIVE: CASE EVENT DATE: 20121001
